FAERS Safety Report 22532100 (Version 1)
Quarter: 2023Q2

REPORT INFORMATION
  Report Type: Spontaneous
  Country: US (occurrence: None)
  Receive Date: 20230606
  Receipt Date: 20230606
  Transmission Date: 20230722
  Serious: Yes (Hospitalization)
  Sender: FDA-Public Use
  Company Number: None

PATIENT
  Sex: Female

DRUGS (1)
  1. ICATIBANT ACETATE [Suspect]
     Active Substance: ICATIBANT ACETATE
     Indication: Immune system disorder
     Dosage: 30MG AS NEEDED SUBCUTANEOUSLY?
     Route: 058
     Dates: start: 20200203

REACTIONS (2)
  - Ill-defined disorder [None]
  - Pharyngeal swelling [None]
